FAERS Safety Report 5099257-6 (Version None)
Quarter: 2006Q3

REPORT INFORMATION
  Report Type: 
  Country: None (occurrence: None)
  Receive Date: 20060731
  Receipt Date: 20060126
  Transmission Date: 20061208
  Serious: Yes (Other)
  Sender: FDA-Public Use
  Company Number: US-2006-001530

PATIENT
  Age: 83 Year
  Sex: Male
  Weight: 91.2 kg

DRUGS (1)
  1. MAGNEVIST [Suspect]
     Indication: NUCLEAR MAGNETIC RESONANCE IMAGING BRAIN
     Dosage: 18 ML, 1 DOSE, INTRAVENOUS
     Route: 042
     Dates: start: 20060111, end: 20060111

REACTIONS (5)
  - ERYTHEMA [None]
  - NAUSEA [None]
  - ORTHOSTATIC HYPOTENSION [None]
  - PRURITUS [None]
  - UNRESPONSIVE TO STIMULI [None]
